FAERS Safety Report 20125926 (Version 1)
Quarter: 2021Q4

REPORT INFORMATION
  Report Type: Other
  Country: ES (occurrence: ES)
  Receive Date: 20211129
  Receipt Date: 20211129
  Transmission Date: 20220303
  Serious: Yes (Other)
  Sender: FDA-Public Use
  Company Number: ES-002147023-NVSC2021ES264292

PATIENT
  Age: 58 Year
  Sex: Male

DRUGS (1)
  1. OMALIZUMAB [Suspect]
     Active Substance: OMALIZUMAB
     Indication: Bronchopulmonary aspergillosis allergic
     Route: 065
     Dates: start: 201712

REACTIONS (6)
  - Bronchopulmonary aspergillosis allergic [Unknown]
  - Condition aggravated [Unknown]
  - Drug ineffective [Unknown]
  - Injection site swelling [Unknown]
  - Induration [Recovered/Resolved]
  - Off label use [Unknown]

NARRATIVE: CASE EVENT DATE: 20190501
